FAERS Safety Report 24657750 (Version 1)
Quarter: 2024Q4

REPORT INFORMATION
  Report Type: Spontaneous
  Country: GB (occurrence: GB)
  Receive Date: 20241125
  Receipt Date: 20241125
  Transmission Date: 20250115
  Serious: Yes (Other)
  Sender: SUNOVION
  Company Number: None

PATIENT

DRUGS (1)
  1. LATUDA [Suspect]
     Active Substance: LURASIDONE HYDROCHLORIDE
     Dosage: 34MG
     Route: 065
     Dates: start: 20240910, end: 20241108

REACTIONS (1)
  - Polydipsia [Recovering/Resolving]

NARRATIVE: CASE EVENT DATE: 20240910
